FAERS Safety Report 24185405 (Version 2)
Quarter: 2024Q3

REPORT INFORMATION
  Report Type: Report from Study
  Country: US (occurrence: US)
  Receive Date: 20240807
  Receipt Date: 20240813
  Transmission Date: 20241017
  Serious: Yes (Other)
  Sender: SANDOZ
  Company Number: US-SANDOZ-SDZ2024US070888

PATIENT
  Sex: Male

DRUGS (4)
  1. OMNITROPE [Suspect]
     Active Substance: SOMATROPIN
     Indication: Short stature
     Dosage: 2.0 MG 2 DOSE EVERY N/A N/A
     Route: 058
  2. OMNITROPE [Suspect]
     Active Substance: SOMATROPIN
     Indication: Short stature
     Dosage: 2.0 MG 2 DOSE EVERY N/A N/A
     Route: 058
  3. OMNITROPE [Suspect]
     Active Substance: SOMATROPIN
     Indication: Short stature
     Dosage: 2.0 MG 2 DOSE EVERY N/A N/A
     Route: 058
  4. OMNITROPE [Suspect]
     Active Substance: SOMATROPIN
     Indication: Short stature
     Dosage: 2.0 MG 2 DOSE EVERY N/A N/A
     Route: 058

REACTIONS (8)
  - Cachexia [Unknown]
  - Weight decreased [Unknown]
  - Injection site pain [Unknown]
  - Device leakage [Unknown]
  - Incorrect dose administered by device [Unknown]
  - Device difficult to use [Unknown]
  - Device issue [Unknown]
  - Incorrect dose administered [Unknown]
